FAERS Safety Report 23601963 (Version 1)
Quarter: 2024Q1

REPORT INFORMATION
  Report Type: Spontaneous
  Country: US (occurrence: None)
  Receive Date: 20240306
  Receipt Date: 20240306
  Transmission Date: 20240410
  Serious: Yes (Hospitalization)
  Sender: FDA-Public Use
  Company Number: None

PATIENT
  Sex: Female

DRUGS (2)
  1. NYVEPRIA [Suspect]
     Active Substance: PEGFILGRASTIM-APGF
     Indication: Malignant connective tissue neoplasm
     Dosage: 6MG SUB-Q??INJECT 1 SYRINGE UNDER THE SKIN FOR ONE DOSE 24 HOURS AFTER CHEMOTHERAPY EVERY 21 DAYS.
     Route: 058
     Dates: start: 202401
  2. ZIEXTENZO [Concomitant]
     Active Substance: PEGFILGRASTIM-BMEZ

REACTIONS (2)
  - Blindness [None]
  - Periorbital inflammation [None]
